FAERS Safety Report 5639841-1 (Version None)
Quarter: 2008Q1

REPORT INFORMATION
  Report Type: 
  Country: None (occurrence: None)
  Receive Date: 20080226
  Receipt Date: 20080226
  Transmission Date: 20080703
  Serious: Yes (Other)
  Sender: FDA-Public Use
  Company Number: None

PATIENT
  Age: 51 Year
  Sex: Female
  Weight: 63.5036 kg

DRUGS (2)
  1. FOSAMAX [Suspect]
     Indication: MENOPAUSE
     Dosage: ONE TABLET  WEEK  PO
     Route: 048
     Dates: start: 20060301, end: 20060915
  2. FOSAMAX [Suspect]
     Indication: RESORPTION BONE INCREASED
     Dosage: ONE TABLET  WEEK  PO
     Route: 048
     Dates: start: 20060301, end: 20060915

REACTIONS (3)
  - CONNECTIVE TISSUE DISORDER [None]
  - MUSCULOSKELETAL STIFFNESS [None]
  - MYALGIA [None]
